FAERS Safety Report 5571104-5 (Version None)
Quarter: 2007Q4

REPORT INFORMATION
  Report Type: 
  Country: None (occurrence: None)
  Receive Date: 20071221
  Receipt Date: 20071213
  Transmission Date: 20080405
  Serious: Yes (Death)
  Sender: FDA-Public Use
  Company Number: GB-MERCK-0712GBR00061

PATIENT
  Age: 52 Year
  Sex: Male
  Weight: 90 kg

DRUGS (3)
  1. ZOCOR [Suspect]
     Indication: BLOOD CHOLESTEROL INCREASED
     Route: 048
     Dates: start: 20070401
  2. METFORMIN [Concomitant]
     Route: 048
     Dates: start: 20050117
  3. ASPIRIN [Concomitant]
     Route: 065
     Dates: start: 20050117

REACTIONS (3)
  - MULTIPLE INJURIES [None]
  - NIGHTMARE [None]
  - SUICIDE ATTEMPT [None]
